FAERS Safety Report 11201831 (Version 1)
Quarter: 2015Q2

REPORT INFORMATION
  Report Type: Spontaneous
  Country: US (occurrence: None)
  Receive Date: 20150608
  Receipt Date: 20150608
  Transmission Date: 20150821
  Serious: No
  Sender: FDA-Public Use
  Company Number: 2015TUS001587

PATIENT
  Age: 69 Year
  Sex: Male
  Weight: 96.1 kg

DRUGS (7)
  1. BRINTELLIX [Suspect]
     Active Substance: VORTIOXETINE HYDROBROMIDE
     Indication: ANXIETY
     Route: 048
     Dates: start: 20150129
  2. ALPRAZOLAM (ALPRAZOLAM) [Concomitant]
     Active Substance: ALPRAZOLAM
  3. BRINTELLIX [Suspect]
     Active Substance: VORTIOXETINE HYDROBROMIDE
     Indication: OBSESSIVE-COMPULSIVE DISORDER
     Route: 048
     Dates: start: 20150129
  4. ABILIFY [Concomitant]
     Active Substance: ARIPIPRAZOLE
  5. LOSARTAN (LOSARTAN) [Concomitant]
     Active Substance: LOSARTAN
  6. VYTORIN [Concomitant]
     Active Substance: EZETIMIBE\SIMVASTATIN
  7. NEXIUM (IESOMEPRAZOLE MAGNESIUM) [Concomitant]

REACTIONS (3)
  - Drug ineffective [None]
  - Off label use [None]
  - Anxiety [None]

NARRATIVE: CASE EVENT DATE: 20150129
